FAERS Safety Report 6198999-9 (Version None)
Quarter: 2009Q2

REPORT INFORMATION
  Report Type: 
  Country: None (occurrence: None)
  Receive Date: 20090522
  Receipt Date: 20090513
  Transmission Date: 20091009
  Serious: Yes (Hospitalization)
  Sender: FDA-Public Use
  Company Number: US-ELI_LILLY_AND_COMPANY-US200905002712

PATIENT
  Sex: Male

DRUGS (12)
  1. HUMULIN N [Suspect]
  2. HUMALOG [Suspect]
  3. METOPROLOL SUCCINATE [Concomitant]
  4. HYDROCHLOROTHIAZIDE [Concomitant]
  5. BENAZEPRIL HYDROCHLORIDE [Concomitant]
     Indication: COUGH
  6. ASPIRIN [Concomitant]
  7. CLARITIN [Concomitant]
  8. HYDRODIURIL [Concomitant]
  9. LOPRESSOR [Concomitant]
  10. LOTENSIN [Concomitant]
  11. LIPITOR [Concomitant]
  12. LISINOPRIL [Concomitant]

REACTIONS (6)
  - ANGINA PECTORIS [None]
  - BLOOD GLUCOSE INCREASED [None]
  - COUGH [None]
  - DRUG DISPENSING ERROR [None]
  - MYOCARDIAL INFARCTION [None]
  - VISUAL ACUITY REDUCED [None]
